FAERS Safety Report 4915070-1 (Version None)
Quarter: 2006Q1

REPORT INFORMATION
  Report Type: 
  Country: None (occurrence: None)
  Receive Date: 20060215
  Receipt Date: 20060215
  Transmission Date: 20060701
  Serious: Yes (Hospitalization)
  Sender: FDA-Public Use
  Company Number: None

PATIENT
  Sex: Female
  Weight: 54.4316 kg

DRUGS (4)
  1. TOPROL-XL [Suspect]
     Indication: HYPERTENSION
     Dosage: 25 MG PO BID
     Route: 048
  2. LANOXIN [Concomitant]
  3. BENTYL [Concomitant]
  4. PROTONIX [Concomitant]

REACTIONS (7)
  - CARDIAC DISORDER [None]
  - CHEST INJURY [None]
  - FACE INJURY [None]
  - FALL [None]
  - INJURY [None]
  - LOSS OF CONSCIOUSNESS [None]
  - MUSCULOSKELETAL DISORDER [None]
